FAERS Safety Report 7873242-0 (Version None)
Quarter: 2011Q4

REPORT INFORMATION
  Report Type: 
  Country: None (occurrence: None)
  Receive Date: 20111030
  Receipt Date: 20110429
  Transmission Date: 20120403
  Serious: No
  Sender: FDA-Public Use
  Company Number: US-AMGEN-USASP2011022487

PATIENT
  Age: 71 Year
  Sex: Female

DRUGS (2)
  1. ENBREL [Suspect]
     Indication: RHEUMATOID ARTHRITIS
     Dosage: 50 MG, QWK
     Dates: start: 20110418
  2. CELLCEPT [Concomitant]
     Dosage: 1000 MG, Q12H
     Dates: start: 20110301

REACTIONS (9)
  - DYSPNOEA [None]
  - ARTHRALGIA [None]
  - CHEST PAIN [None]
  - HEADACHE [None]
  - BACK PAIN [None]
  - JOINT SWELLING [None]
  - ABDOMINAL PAIN [None]
  - NAUSEA [None]
  - PAIN [None]
